FAERS Safety Report 6734026-X (Version None)
Quarter: 2010Q2

REPORT INFORMATION
  Report Type: 
  Country: None (occurrence: None)
  Receive Date: 20100520
  Receipt Date: 20100510
  Transmission Date: 20101027
  Serious: Yes (Hospitalization)
  Sender: FDA-Public Use
  Company Number: JP-NOVOPROD-306741

PATIENT
  Sex: Female
  Weight: 52 kg

DRUGS (6)
  1. LEVEMIR [Suspect]
     Indication: TYPE 2 DIABETES MELLITUS
     Dosage: 16 U, QD
     Route: 058
     Dates: start: 20080916
  2. NOVORAPID CHU FLEXPEN [Suspect]
     Indication: TYPE 2 DIABETES MELLITUS
     Dosage: 30 U, UNK
     Route: 058
  3. LIPITOR [Concomitant]
     Dosage: 10 MG, QD
     Route: 048
     Dates: start: 20041125
  4. WARFARIN POTASSIUM [Concomitant]
     Dosage: 1 MG, QD
     Route: 048
     Dates: start: 20080819
  5. LASIX [Concomitant]
     Dosage: 20 MG, QD
     Route: 048
     Dates: start: 20080819
  6. FAMOTIDINE [Concomitant]
     Dosage: 20 MG, QD
     Route: 048
     Dates: start: 20080819

REACTIONS (1)
  - GASTRIC CANCER [None]
